APPROVED DRUG PRODUCT: RETIN-A
Active Ingredient: TRETINOIN
Strength: 0.05%
Dosage Form/Route: CREAM;TOPICAL
Application: N017522 | Product #001 | TE Code: AB1
Applicant: VALEANT INTERNATIONAL BERMUDA
Approved: Approved Prior to Jan 1, 1982 | RLD: Yes | RS: Yes | Type: RX